FAERS Safety Report 5211185-1 (Version None)
Quarter: 2006Q4

REPORT INFORMATION
  Report Type: 
  Country: None (occurrence: None)
  Receive Date: 20061114
  Receipt Date: 20060925
  Transmission Date: 20070319
  Serious: No
  Sender: FDA-Public Use
  Company Number: S06-USA-03878-01

PATIENT
  Age: 20 Year
  Sex: Male

DRUGS (1)
  1. NAMENDA [Suspect]
     Indication: MEMORY IMPAIRMENT
     Dates: end: 20060701

REACTIONS (2)
  - COGNITIVE DISORDER [None]
  - ULCER [None]
